FAERS Safety Report 8789712 (Version 2)
Quarter: 2012Q4

REPORT INFORMATION
  Report Type: Spontaneous
  Country: IT (occurrence: None)
  Receive Date: 20120906
  Receipt Date: 20120913
  Transmission Date: 20130627
  Serious: Yes (Hospitalization, Other)
  Sender: FDA-Public Use
  Company Number: AUR-APL-2012-03741

PATIENT
  Age: 84 Year
  Sex: Male

DRUGS (6)
  1. RAMIPRIL (RAMIPRIL) [Suspect]
     Indication: BLOOD PRESSURE HIGH
     Route: 048
     Dates: start: 20110516, end: 20120515
  2. LUVION [Suspect]
     Indication: BLOOD PRESSURE HIGH
     Route: 048
     Dates: start: 20110516, end: 20120515
  3. LANTUS (INSULIN GLARGINE) [Concomitant]
  4. APIDRA (INSULIN GLULISINE) [Concomitant]
  5. ACETYLSALICYLIC ACID (ACETYLSALICYLIC ACID) [Concomitant]
  6. SIMVASTATIN (SIMVASTATIN) [Concomitant]

REACTIONS (5)
  - Hyperkalaemia [None]
  - Nodal arrhythmia [None]
  - Renal failure [None]
  - Hypertrophic cardiomyopathy [None]
  - Bundle branch block right [None]
